FAERS Safety Report 5486652-6 (Version None)
Quarter: 2007Q3

REPORT INFORMATION
  Report Type: 
  Country: None (occurrence: None)
  Receive Date: 20070925
  Receipt Date: 20070905
  Transmission Date: 20080115
  Serious: No
  Sender: FDA-Public Use
  Company Number: 2007US001746

PATIENT
  Age: 52 Year
  Sex: Female

DRUGS (5)
  1. VESICARE [Suspect]
     Indication: URINE ABNORMALITY
     Dosage: 5 MG, UID/QD, ORAL
     Route: 048
     Dates: start: 20070724
  2. NEXIUM [Concomitant]
  3. METAMUCIL-2 [Concomitant]
  4. CRANBERRY                     (VACCINIUM MACROCARPON) [Concomitant]
  5. ATARAX [Concomitant]

REACTIONS (3)
  - CONSTIPATION [None]
  - DRUG INEFFECTIVE [None]
  - VISION BLURRED [None]
